FAERS Safety Report 8155610-5 (Version None)
Quarter: 2012Q1

REPORT INFORMATION
  Report Type: 
  Country: None (occurrence: None)
  Receive Date: 20120222
  Receipt Date: 20120217
  Transmission Date: 20120608
  Serious: Yes (Death)
  Sender: FDA-Public Use
  Company Number: US-PFIZER INC-2012022754

PATIENT
  Sex: Female

DRUGS (5)
  1. HYDROMORPHONE [Concomitant]
     Indication: PAIN
     Dosage: 8 MG, UNK
     Dates: start: 20110330, end: 20120103
  2. LORAZEPAM [Concomitant]
     Indication: ANXIETY
     Dosage: 0.5 MG, UNK
     Route: 048
     Dates: start: 20111201, end: 20120103
  3. SUTENT [Suspect]
     Indication: RENAL CELL CARCINOMA
     Dosage: 50 MG, 1X/DAY
     Route: 048
     Dates: start: 20110610, end: 20120102
  4. SUTENT [Suspect]
     Indication: METASTATIC RENAL CELL CARCINOMA
  5. MORPHINE SULFATE [Concomitant]
     Indication: PAIN
     Dosage: 10 MG, UNK
     Dates: start: 20111201, end: 20120103

REACTIONS (2)
  - RENAL CELL CARCINOMA [None]
  - DISEASE PROGRESSION [None]
